FAERS Safety Report 6483931-0 (Version None)
Quarter: 2009Q4

REPORT INFORMATION
  Report Type: 
  Country: None (occurrence: None)
  Receive Date: 20091209
  Receipt Date: 20091202
  Transmission Date: 20100525
  Serious: Yes (Hospitalization, Disabling)
  Sender: FDA-Public Use
  Company Number: US-MERCK-0907USA04409

PATIENT
  Age: 67 Year
  Sex: Female
  Weight: 83 kg

DRUGS (1)
  1. FOSAMAX [Suspect]
     Indication: OSTEOPENIA
     Route: 048
     Dates: start: 19980414

REACTIONS (10)
  - ADENOMA BENIGN [None]
  - ADVERSE EVENT [None]
  - ASTHENIA [None]
  - BACK PAIN [None]
  - DIABETES MELLITUS [None]
  - FEMUR FRACTURE [None]
  - HEPATIC STEATOSIS [None]
  - OSTEOPOROSIS [None]
  - POLYMYALGIA RHEUMATICA [None]
  - SUPRAVENTRICULAR EXTRASYSTOLES [None]
